FAERS Safety Report 12211773 (Version 1)
Quarter: 2016Q1

REPORT INFORMATION
  Report Type: Spontaneous
  Country: US (occurrence: US)
  Receive Date: 20160325
  Receipt Date: 20160325
  Transmission Date: 20160526
  Serious: Yes (Other)
  Sender: FDA-Public Use
  Company Number: US-ELI_LILLY_AND_COMPANY-US201603008712

PATIENT
  Age: 61 Year
  Sex: Male

DRUGS (2)
  1. CETUXIMAB [Suspect]
     Active Substance: CETUXIMAB
     Indication: GLIOBLASTOMA MULTIFORME
     Dosage: 100 MG/M2, CYCLICAL
     Route: 013
  2. BENADRYL [Concomitant]
     Active Substance: DIPHENHYDRAMINE HYDROCHLORIDE
     Indication: PREMEDICATION
     Dosage: UNK

REACTIONS (4)
  - Seizure [Recovered/Resolved]
  - Hemiparesis [Recovering/Resolving]
  - Post procedural haemorrhage [Recovering/Resolving]
  - Brain oedema [Recovering/Resolving]
